FAERS Safety Report 12256655 (Version 1)
Quarter: 2016Q2

REPORT INFORMATION
  Report Type: Spontaneous
  Country: None (occurrence: None)
  Receive Date: 20160411
  Receipt Date: 20160411
  Transmission Date: 20160815
  Serious: No
  Sender: FDA-Public Use
  Company Number: None

PATIENT
  Age: 61 Year
  Sex: Female

DRUGS (1)
  1. ENBREL [Suspect]
     Active Substance: ETANERCEPT
     Route: 058
     Dates: start: 20151006, end: 20160229

REACTIONS (3)
  - Device malfunction [None]
  - Medical device site bruise [None]
  - Product substitution issue [None]

NARRATIVE: CASE EVENT DATE: 20160229
